FAERS Safety Report 17716328 (Version 15)
Quarter: 2022Q4

REPORT INFORMATION
  Report Type: Other
  Country: DE (occurrence: None)
  Receive Date: 20200428
  Receipt Date: 20221123
  Transmission Date: 20230113
  Serious: Yes (Hospitalization, Other)
  Sender: FDA-Public Use
  Company Number: DE-ROCHE-2588771

PATIENT
  Age: 42 Year
  Sex: Female

DRUGS (12)
  1. OCREVUS [Suspect]
     Active Substance: OCRELIZUMAB
     Indication: Primary progressive multiple sclerosis
     Route: 042
     Dates: start: 20190501
  2. OCREVUS [Suspect]
     Active Substance: OCRELIZUMAB
     Route: 042
     Dates: start: 201911
  3. OCREVUS [Suspect]
     Active Substance: OCRELIZUMAB
     Dosage: 4TH INFUSION
     Route: 042
     Dates: start: 202005
  4. OCREVUS [Suspect]
     Active Substance: OCRELIZUMAB
     Dosage: 5TH INFUSION
     Route: 042
     Dates: start: 202005
  5. OCREVUS [Suspect]
     Active Substance: OCRELIZUMAB
     Route: 042
     Dates: start: 20201109
  6. OCREVUS [Suspect]
     Active Substance: OCRELIZUMAB
     Route: 042
  7. PREDNISOLONE [Suspect]
     Active Substance: PREDNISOLONE
     Indication: Premedication
     Route: 065
  8. PFIZER-BIONTECH COVID-19 VACCINE [Suspect]
     Active Substance: TOZINAMERAN
     Indication: Product used for unknown indication
     Route: 065
  9. CAMPHOR (SYNTHETIC)\MENTHOL [Concomitant]
     Active Substance: CAMPHOR (SYNTHETIC)\MENTHOL
     Dosage: AS REQUIRED
     Dates: end: 20210215
  10. ACETAMINOPHEN\ASPIRIN\CAFFEINE [Concomitant]
     Active Substance: ACETAMINOPHEN\ASPIRIN\CAFFEINE
  11. METHYLPREDNISOLONE [Concomitant]
     Active Substance: METHYLPREDNISOLONE
     Indication: Premedication
  12. PANTOPRAZOLE [Concomitant]
     Active Substance: PANTOPRAZOLE

REACTIONS (20)
  - Arrhythmia [Recovered/Resolved]
  - Palpitations [Recovered/Resolved]
  - Heart rate increased [Recovered/Resolved]
  - Extrasystoles [Recovered/Resolved]
  - Fatigue [Recovered/Resolved]
  - Blood pressure increased [Recovered/Resolved]
  - Cardiovascular disorder [Unknown]
  - Musculoskeletal stiffness [Recovered/Resolved]
  - Abdominal pain upper [Recovering/Resolving]
  - Abdominal distension [Recovering/Resolving]
  - Dyspepsia [Recovering/Resolving]
  - Abdominal discomfort [Recovering/Resolving]
  - Headache [Recovered/Resolved]
  - Listless [Recovered/Resolved]
  - Herpes zoster [Recovered/Resolved]
  - Arrhythmia [Recovered/Resolved]
  - COVID-19 [Recovered/Resolved]
  - Fatigue [Unknown]
  - SARS-CoV-2 antibody test negative [Recovered/Resolved]
  - Balance disorder [Recovered/Resolved]

NARRATIVE: CASE EVENT DATE: 20190501
